FAERS Safety Report 6934580-9 (Version None)
Quarter: 2010Q3

REPORT INFORMATION
  Report Type: 
  Country: None (occurrence: None)
  Receive Date: 20100820
  Receipt Date: 20100812
  Transmission Date: 20110219
  Serious: Yes (Life-Threatening, Hospitalization)
  Sender: FDA-Public Use
  Company Number: JP-ABBOTT-10P-087-0655058-00

PATIENT
  Sex: Female

DRUGS (13)
  1. HUMIRA [Suspect]
     Indication: RHEUMATOID ARTHRITIS
     Route: 058
     Dates: start: 20100412, end: 20100621
  2. METHOTREXATE [Concomitant]
     Indication: RHEUMATOID ARTHRITIS
     Route: 048
     Dates: start: 20090403, end: 20100626
  3. BUCILLAMINE [Concomitant]
     Indication: RHEUMATOID ARTHRITIS
     Route: 048
     Dates: start: 20000501, end: 20100626
  4. TACROLIMUS [Concomitant]
     Indication: RHEUMATOID ARTHRITIS
     Route: 048
     Dates: start: 20091130, end: 20100411
  5. PREDNISOLONE [Concomitant]
     Indication: RHEUMATOID ARTHRITIS
     Route: 048
     Dates: start: 20000508
  6. LOXOPROFEN SODIUM HYDRATE [Concomitant]
     Indication: RHEUMATOID ARTHRITIS
     Route: 048
     Dates: start: 20000501, end: 20100626
  7. REBAMIPIDE [Concomitant]
     Indication: PROPHYLAXIS
     Route: 048
     Dates: start: 20000501, end: 20100626
  8. REBAMIPIDE [Concomitant]
     Indication: ADVERSE DRUG REACTION
  9. ALFACALCIDOL [Concomitant]
     Indication: OSTEOPOROSIS PROPHYLAXIS
     Route: 048
     Dates: start: 20030612, end: 20100626
  10. CALCIUM L-ASPARTATE HYDRATE [Concomitant]
     Indication: OSTEOPOROSIS PROPHYLAXIS
     Route: 048
     Dates: start: 20030612, end: 20100626
  11. SODIUM RISEDRONATE HYDRATE [Concomitant]
     Indication: OSTEOPOROSIS PROPHYLAXIS
     Route: 048
     Dates: start: 20080614, end: 20100626
  12. FOLIC ACID [Concomitant]
     Indication: PROPHYLAXIS
     Route: 048
     Dates: start: 20090406, end: 20100626
  13. FOLIC ACID [Concomitant]
     Indication: ADVERSE DRUG REACTION

REACTIONS (17)
  - ASCITES [None]
  - ATELECTASIS [None]
  - BILIARY DILATATION [None]
  - BONE NEOPLASM [None]
  - FLUID RETENTION [None]
  - FRACTURED ISCHIUM [None]
  - HEPATIC CYST [None]
  - INTERVERTEBRAL DISCITIS [None]
  - LOCALISED OEDEMA [None]
  - MENINGEAL NEOPLASM [None]
  - MUSCLE ATROPHY [None]
  - PARAPLEGIA [None]
  - PLEURAL EFFUSION [None]
  - PUBIS FRACTURE [None]
  - SEPSIS [None]
  - SPINAL COLUMN STENOSIS [None]
  - SPINAL COMPRESSION FRACTURE [None]
